FAERS Safety Report 20210830 (Version 1)
Quarter: 2021Q4

REPORT INFORMATION
  Report Type: Report from Study
  Country: AR (occurrence: AR)
  Receive Date: 20211221
  Receipt Date: 20211221
  Transmission Date: 20220303
  Serious: Yes (Hospitalization)
  Sender: FDA-Public Use
  Company Number: AR-NOVARTISPH-NVSC2021AR025181

PATIENT
  Age: 11 Year
  Sex: Male

DRUGS (1)
  1. OMNITROPE [Suspect]
     Active Substance: SOMATROPIN
     Indication: Small for dates baby
     Dosage: 1.7 MG, QD
     Route: 058
     Dates: start: 20210127

REACTIONS (5)
  - Intracranial pressure increased [Recovering/Resolving]
  - Lung disorder [Unknown]
  - Headache [Recovering/Resolving]
  - Fatigue [Unknown]
  - Hypersomnia [Unknown]

NARRATIVE: CASE EVENT DATE: 20210127
